FAERS Safety Report 9268742 (Version 1)
Quarter: 2013Q2

REPORT INFORMATION
  Report Type: Spontaneous
  Country: US (occurrence: US)
  Receive Date: 20130502
  Receipt Date: 20130502
  Transmission Date: 20140414
  Serious: No
  Sender: FDA-Public Use
  Company Number: US-009507513-1304USA014182

PATIENT
  Sex: Male

DRUGS (2)
  1. PEGINTRON [Suspect]
     Dosage: 120 MICROGRAM, QW, REDIPEN
     Dates: start: 20130412
  2. PEGINTRON [Suspect]
     Dosage: 120 MICROGRAM, QW, REDIPEN
     Dates: start: 20130412

REACTIONS (4)
  - Drug dose omission [Unknown]
  - Device leakage [Unknown]
  - Accidental exposure to product [Unknown]
  - No adverse event [Unknown]
